FAERS Safety Report 9056639 (Version 1)
Quarter: 2013Q1

REPORT INFORMATION
  Report Type: Report from Study
  Country: DE (occurrence: DE)
  Receive Date: 20130204
  Receipt Date: 20130204
  Transmission Date: 20140127
  Serious: Yes (Life-Threatening, Hospitalization, Other)
  Sender: FDA-Public Use
  Company Number: DE-PFIZER INC-DE-WYE-H09824809

PATIENT
  Age: 67 Year
  Sex: Male
  Weight: 82 kg

DRUGS (112)
  1. SIROLIMUS [Suspect]
     Indication: PROPHYLAXIS AGAINST TRANSPLANT REJECTION
  2. MYCOPHENOLATE MOFETIL [Suspect]
     Indication: PROPHYLAXIS AGAINST TRANSPLANT REJECTION
     Dosage: 1 G, 2X/DAY
     Route: 048
     Dates: start: 20030430, end: 20031011
  3. MYCOPHENOLATE MOFETIL [Suspect]
     Dosage: 250 MG, UNK
     Route: 048
     Dates: start: 20031105, end: 20031105
  4. MYCOPHENOLATE MOFETIL [Suspect]
     Dosage: 250 MG, 2X/DAY
     Route: 048
     Dates: start: 20031106, end: 20031117
  5. MYCOPHENOLATE MOFETIL [Suspect]
     Dosage: 250 MG, 2X/DAY
     Route: 048
     Dates: start: 20031125, end: 20031127
  6. MYCOPHENOLATE MOFETIL [Suspect]
     Indication: PROPHYLAXIS AGAINST TRANSPLANT REJECTION
     Dosage: 250 MG, SINGLE (TABLET)
     Route: 048
     Dates: start: 20031118
  7. MYCOPHENOLATE MOFETIL [Suspect]
     Dosage: 500 MG, 2X/DAY (TABLET)
     Route: 048
     Dates: start: 20031128, end: 20031204
  8. MYCOPHENOLATE MOFETIL [Suspect]
     Dosage: 1 G, 2X/DAY
     Route: 048
     Dates: start: 20031205
  9. TACROLIMUS [Suspect]
     Indication: PROPHYLAXIS AGAINST TRANSPLANT REJECTION
     Dosage: 1.5 MG, 2X/DAY
     Route: 048
     Dates: start: 20030430, end: 20030430
  10. TACROLIMUS [Suspect]
     Dosage: 3 MG, 2X/DAY
     Route: 048
     Dates: start: 20030504
  11. TACROLIMUS [Suspect]
     Dosage: 1.5 MG, 2X/DAY
     Route: 048
     Dates: start: 20030506
  12. TACROLIMUS [Suspect]
     Dosage: 2 MG, 2X/DAY
     Route: 048
     Dates: start: 20030510
  13. TACROLIMUS [Suspect]
     Dosage: 1.75 MG, 2X/DAY
     Route: 065
     Dates: start: 20030516, end: 20030516
  14. TACROLIMUS [Suspect]
     Dosage: 1.5 MG, 2X/DAY
     Route: 048
     Dates: start: 20030517, end: 20030517
  15. TACROLIMUS [Suspect]
     Dosage: 1.25 MG, 2X/DAY
     Route: 048
     Dates: start: 20030529, end: 20030529
  16. TACROLIMUS [Suspect]
     Dosage: 1 MG, 2X/DAY
     Route: 048
     Dates: start: 20030530
  17. TACROLIMUS [Suspect]
     Dosage: 1.5 MG, 2X/DAY
     Route: 048
     Dates: start: 20031012
  18. TACROLIMUS [Suspect]
     Dosage: 2 MG, 2X/DAY
     Route: 048
     Dates: start: 20031014
  19. TACROLIMUS [Suspect]
     Dosage: 2.5 MG, 2 TOTAL
     Dates: start: 20031019, end: 20031019
  20. TACROLIMUS [Suspect]
     Dosage: 3 MG, 2X/DAY
     Route: 048
     Dates: start: 20031020
  21. TACROLIMUS [Suspect]
     Dosage: 3.5 MG, 2X/DAY
     Route: 048
     Dates: start: 20031021
  22. TACROLIMUS [Suspect]
     Dosage: 4 MG, 2X/DAY
     Route: 048
     Dates: start: 20031022
  23. TACROLIMUS [Suspect]
     Dosage: 6 MG, 2X/DAY
     Route: 048
     Dates: start: 20031024
  24. TACROLIMUS [Suspect]
     Dosage: 5.5 MG, 2 TOTAL
     Dates: start: 20031026, end: 20031026
  25. TACROLIMUS [Suspect]
     Dosage: 5 MG, UNK
     Route: 048
     Dates: start: 20031027, end: 20031027
  26. TACROLIMUS [Suspect]
     Dosage: 3 MG, SINGLE
     Route: 048
     Dates: start: 20031028, end: 20121028
  27. TACROLIMUS [Suspect]
     Dosage: 3 MG, 2X/DAY
     Dates: start: 20031029
  28. TACROLIMUS [Suspect]
     Dosage: 4 MG, 2X/DAY
     Dates: start: 20031101, end: 20031101
  29. TACROLIMUS [Suspect]
     Dosage: 5 MG, 2X/DAY
     Dates: start: 20031102
  30. TACROLIMUS [Suspect]
     Dosage: 4 MG, 2X/DAY
     Dates: start: 20031106
  31. TACROLIMUS [Suspect]
     Dosage: 3 MG, 2X/DAY
     Dates: start: 20031107
  32. TACROLIMUS [Suspect]
     Dosage: 2 MG, 2X/DAY
     Dates: start: 20031110
  33. TACROLIMUS [Suspect]
     Dosage: 1.75 MG, 2X/DAY
     Dates: start: 20031111
  34. TACROLIMUS [Suspect]
     Dosage: 1.5 MG, 2X/DAY
     Dates: start: 20031112
  35. TACROLIMUS [Suspect]
     Dosage: 2 MG, 2X/DAY
     Dates: start: 20031114
  36. TACROLIMUS [Suspect]
     Dosage: 3 MG, 2X/DAY
     Dates: start: 20031115
  37. TACROLIMUS [Suspect]
     Dosage: 2 MG, 2X/DAY
     Route: 048
     Dates: start: 20031127
  38. TACROLIMUS [Suspect]
     Dosage: 1.5 MG, 2X/DAY
     Dates: start: 20031129
  39. TACROLIMUS [Suspect]
     Dosage: 1 MG, 2X/DAY
     Dates: start: 20031206
  40. TACROLIMUS [Suspect]
     Dosage: 0.75 MG, 2X/DAY
     Dates: start: 200402
  41. DACLIZUMAB [Suspect]
     Dosage: 150 MG, 1 TOTAL
     Route: 042
     Dates: start: 20030430, end: 20030430
  42. DACLIZUMAB [Suspect]
     Dosage: 80 MG, SINGLE
     Route: 042
     Dates: start: 20030513, end: 20030513
  43. DACLIZUMAB [Suspect]
     Dosage: 76 MG, SINGLE
     Route: 042
     Dates: start: 20030527, end: 20030527
  44. DACLIZUMAB [Suspect]
     Dosage: 75 MG, 1 IN 2 WK
     Route: 042
     Dates: start: 20030610, end: 20030625
  45. DECORTIN-H [Suspect]
     Indication: PROPHYLAXIS AGAINST TRANSPLANT REJECTION
     Dosage: 75 MG, SINGLE
     Route: 048
     Dates: start: 20030501, end: 20030501
  46. DECORTIN-H [Suspect]
     Dosage: 2 SINGLE DOSES (50 MG)
     Route: 065
     Dates: start: 20030502, end: 20030502
  47. DECORTIN-H [Suspect]
     Dosage: 30 MG, 1X/DAY
     Route: 065
     Dates: start: 20030503, end: 20030515
  48. DECORTIN-H [Suspect]
     Dosage: UNK
     Route: 048
     Dates: end: 20030517
  49. DECORTIN-H [Suspect]
     Dosage: 75 MG, UNK
     Route: 048
     Dates: start: 20030519
  50. DECORTIN-H [Suspect]
     Dosage: 50 MG, UNK
     Dates: start: 20030527, end: 20030527
  51. DECORTIN-H [Suspect]
     Dosage: 30 MG, UNK
     Dates: start: 20030528, end: 20030528
  52. DECORTIN-H [Suspect]
     Dosage: 7.5 MG, UNK
     Dates: start: 20030529
  53. DECORTIN-H [Suspect]
     Dosage: UNK
     Dates: end: 20031030
  54. DECORTIN-H [Suspect]
     Dosage: 5 MG, 1X/DAY
     Route: 048
     Dates: start: 20031104
  55. SOLU-DECORTIN-H [Suspect]
     Indication: PROPHYLAXIS AGAINST TRANSPLANT REJECTION
     Dosage: 250 MG, 3X/DAY
     Route: 042
     Dates: start: 20030430, end: 20030430
  56. SOLU-DECORTIN-H [Suspect]
     Dosage: 250 MG, 1X/DAY
     Route: 042
     Dates: start: 20030501, end: 20030501
  57. SOLU-DECORTIN-H [Suspect]
     Dosage: 250 MG, 1X/DAY
     Route: 042
     Dates: start: 20030516, end: 20030516
  58. SOLU-DECORTIN-H [Suspect]
     Dosage: 100 MG, 1X/DAY
     Route: 042
     Dates: start: 20031029, end: 20031029
  59. SOLU-DECORTIN-H [Suspect]
     Dosage: UNK
     Route: 042
     Dates: start: 20031101
  60. CYCLOSPORINE [Suspect]
     Indication: PROPHYLAXIS AGAINST TRANSPLANT REJECTION
     Dosage: UNK
     Route: 048
     Dates: start: 20030430, end: 20031115
  61. PANTOZOL [Concomitant]
     Dosage: 40 MG, UNK
     Route: 065
     Dates: start: 20030501
  62. ROCALTROL [Concomitant]
     Dosage: 0.25 MG, UNK
     Route: 048
     Dates: start: 20030501
  63. CALCET [Concomitant]
     Dosage: UNK
     Route: 065
     Dates: start: 20030515, end: 20030516
  64. AMPHO-MORONAL [Concomitant]
     Dosage: UNK
     Route: 065
     Dates: start: 20030501, end: 20030916
  65. ACICLOVIR [Concomitant]
     Dosage: 500 MG, 3X/DAY
     Route: 042
     Dates: start: 20031024, end: 20031107
  66. AMLODIPINE [Concomitant]
     Dosage: 5 MG, 2X/DAY
     Route: 048
     Dates: start: 20030312, end: 20031205
  67. NYSTATIN [Concomitant]
     Dosage: UNK
     Route: 065
  68. ASS ^HEXAL^ [Concomitant]
     Dosage: 100 MG, UNK
     Route: 048
     Dates: start: 20031020
  69. CALCIUM [Concomitant]
     Dosage: 500 MG, 1X/DAY
     Route: 065
  70. CARBAMAZEPINE [Concomitant]
     Dosage: 300 MG, 2X/DAY
     Route: 048
     Dates: start: 200310, end: 20031119
  71. DILATREND [Concomitant]
     Dosage: 25 MG, 2X/DAY
     Route: 048
     Dates: start: 20030430, end: 200402
  72. CEFOTIAM HYDROCHLORIDE [Concomitant]
     Dosage: 250 MG, 1X/DAY
     Route: 065
     Dates: start: 20031118, end: 20031120
  73. ZIENAM [Concomitant]
     Dosage: 0.5 G, 2X/DAY
     Route: 065
     Dates: start: 20031119, end: 20031127
  74. CIPROBAY [Concomitant]
     Dosage: 250 MG, 2X/DAY
     Route: 042
     Dates: start: 20031127, end: 20031203
  75. CATAPRESSAN [Concomitant]
     Dosage: 150 MG, 2X/DAY
     Route: 048
     Dates: start: 20030916, end: 20030928
  76. CATAPRESSAN [Concomitant]
     Dosage: 250 MG, 2X/DAY
     Route: 048
     Dates: start: 20031030, end: 20031116
  77. CLOPIDOGREL [Concomitant]
     Dosage: 70 MG, 1X/DAY
     Route: 048
     Dates: start: 20031107, end: 20031112
  78. COLECALCIFEROL [Concomitant]
     Dosage: UNK
     Route: 065
     Dates: end: 20031024
  79. NEPRESOL [Concomitant]
     Dosage: 25 MG, 2X/DAY
  80. EPOETIN BETA [Concomitant]
     Dosage: UNK
     Route: 058
     Dates: start: 20030503, end: 20030604
  81. EPOETIN BETA [Concomitant]
     Dosage: 5000 IU, EVERY 3 WEEKS
     Route: 058
     Dates: start: 20031121, end: 20031209
  82. BERODUAL [Concomitant]
     Dosage: 2 DF, 2X/DAY
     Route: 055
     Dates: start: 20031025, end: 20031110
  83. FLUVASTATIN [Concomitant]
     Dosage: 80 MG, 1X/DAY
     Route: 048
     Dates: start: 20031113
  84. FUROSEMIDE [Concomitant]
     Dosage: 100 MG, 2X/DAY
     Route: 042
     Dates: start: 20030917, end: 20030917
  85. FUROSEMIDE [Concomitant]
     Dosage: 250 MG, 2X/DAY
     Route: 042
     Dates: start: 20030920, end: 20030921
  86. FUROSEMIDE [Concomitant]
     Dosage: UNK
     Dates: end: 20031001
  87. LASIX [Concomitant]
     Dosage: 80 MG, 2X/DAY
     Route: 048
     Dates: start: 20030513
  88. CYMEVAN [Concomitant]
     Dosage: 1 G, 3X/DAY
     Route: 048
     Dates: start: 20030501, end: 20030730
  89. LIQUAEMIN SODIUM [Concomitant]
     Dosage: UNK
     Dates: start: 20030503, end: 20030601
  90. HYDROCHLOROTHIAZIDE [Concomitant]
     Dosage: 25 MG, 1X/DAY
     Route: 048
     Dates: start: 200310, end: 20031110
  91. ACTRAPID INSULIN NOVO [Concomitant]
     Dosage: UNK
     Route: 065
     Dates: start: 20030501
  92. ACTRAPID HUMAN [Concomitant]
     Dosage: UNK
     Route: 058
     Dates: start: 20030501, end: 20030728
  93. PROTAPHAN [Concomitant]
     Dosage: 10 IU, 1X/DAY
     Route: 058
     Dates: start: 20030620
  94. ATROVENT [Concomitant]
     Dosage: 2 DF, 1X/DAY
     Route: 055
     Dates: start: 20030922, end: 20031001
  95. ATROVENT [Concomitant]
     Dosage: 1 DF, 2X/DAY
     Route: 055
     Dates: start: 20031025, end: 20031118
  96. ISOKET RETARD [Concomitant]
     Dosage: 60 MG, 2X/DAY
     Route: 065
  97. ISOSORBIDE DINITRATE [Concomitant]
     Dosage: 60 MG, 2X/DAY
     Route: 048
     Dates: start: 20031104, end: 20031204
  98. CORVATON - SLOW RELEASE ^HOECHST^ [Concomitant]
     Dosage: UNK
     Route: 065
     Dates: start: 20031107, end: 20031205
  99. MOXONIDINE [Concomitant]
     Dosage: UNK
     Route: 065
     Dates: end: 20031029
  100. MOXONIDINE [Concomitant]
     Dosage: UNK
     Route: 065
     Dates: start: 200310, end: 20031030
  101. PIPERACILLIN [Concomitant]
     Dosage: UNK
     Route: 065
     Dates: start: 20031024, end: 20031107
  102. KALINOR-BRAUSETABLETTEN [Concomitant]
     Dosage: UNK
  103. BAYOTENSIN [Concomitant]
     Dosage: UNK
     Route: 048
     Dates: start: 20030512, end: 20030518
  104. PRAVASIN [Concomitant]
     Dosage: UNK
     Route: 065
     Dates: start: 20030501, end: 20031107
  105. DELIX [Concomitant]
     Dosage: UNK
  106. MINIPRES [Concomitant]
     Dosage: 4 MG, 2X/DAY
     Route: 048
     Dates: start: 20031030, end: 20031115
  107. ACTONEL [Concomitant]
     Dosage: 5 MG, 1X/DAY
     Route: 048
     Dates: start: 20030501, end: 200310
  108. SPASMEX [Concomitant]
     Dosage: UNK
     Route: 065
     Dates: start: 20030501, end: 20030503
  109. SULTANOL [Concomitant]
     Dosage: 2 DF, UNK
     Route: 055
     Dates: start: 20031025, end: 20031118
  110. TAZOBACTAM [Concomitant]
     Dosage: 4.4 G, 2X/DAY
     Route: 042
     Dates: start: 20031024, end: 20031107
  111. UNACID [Concomitant]
     Dosage: 1.5 G, 2 TOTAL
     Route: 042
     Dates: start: 20030430, end: 20030430
  112. VANCOMYCIN [Concomitant]
     Dosage: 500 MG, UNK
     Route: 042
     Dates: start: 20031119, end: 20031121

REACTIONS (16)
  - Myocardial infarction [Recovered/Resolved]
  - Angina unstable [Recovered/Resolved]
  - Diabetes mellitus [Recovered/Resolved]
  - Cardiac failure [Recovered/Resolved]
  - Herpes zoster [Recovered/Resolved]
  - Cellulitis [Recovered/Resolved]
  - Renal failure [Recovered/Resolved]
  - Renal artery stenosis [Recovered/Resolved]
  - Urinary tract infection enterococcal [Recovered/Resolved]
  - Femoral neck fracture [Recovered/Resolved]
  - Angina pectoris [Recovered/Resolved]
  - Fluid overload [Recovered/Resolved]
  - Peritoneal hernia [Recovered/Resolved]
  - Chronic allograft nephropathy [Not Recovered/Not Resolved]
  - Hypertension [Recovered/Resolved]
  - Condition aggravated [Recovered/Resolved]
